FAERS Safety Report 25825500 (Version 1)
Quarter: 2025Q3

REPORT INFORMATION
  Report Type: Spontaneous
  Country: EU (occurrence: EU)
  Receive Date: 20250919
  Receipt Date: 20250919
  Transmission Date: 20251021
  Serious: Yes (Hospitalization)
  Sender: MYLAN
  Company Number: None

PATIENT
  Age: 76 Year
  Sex: Male

DRUGS (8)
  1. MIDODRINE [Suspect]
     Active Substance: MIDODRINE
     Indication: Autonomic nervous system imbalance
     Dosage: 2.5 MILLIGRAM, Q8H
     Dates: start: 20250624, end: 20250710
  2. MIDODRINE [Suspect]
     Active Substance: MIDODRINE
     Dosage: 2.5 MILLIGRAM, Q8H
     Route: 048
     Dates: start: 20250624, end: 20250710
  3. MIDODRINE [Suspect]
     Active Substance: MIDODRINE
     Dosage: 2.5 MILLIGRAM, Q8H
     Route: 048
     Dates: start: 20250624, end: 20250710
  4. MIDODRINE [Suspect]
     Active Substance: MIDODRINE
     Dosage: 2.5 MILLIGRAM, Q8H
     Dates: start: 20250624, end: 20250710
  5. REBLOZYL [Suspect]
     Active Substance: LUSPATERCEPT-AAMT
     Indication: Anaemia
  6. REBLOZYL [Suspect]
     Active Substance: LUSPATERCEPT-AAMT
     Route: 058
  7. REBLOZYL [Suspect]
     Active Substance: LUSPATERCEPT-AAMT
     Route: 058
  8. REBLOZYL [Suspect]
     Active Substance: LUSPATERCEPT-AAMT

REACTIONS (1)
  - Hepatitis cholestatic [Recovering/Resolving]

NARRATIVE: CASE EVENT DATE: 20250703
